FAERS Safety Report 13579127 (Version 1)
Quarter: 2017Q2

REPORT INFORMATION
  Report Type: Report from Study
  Country: DE (occurrence: DE)
  Receive Date: 20170524
  Receipt Date: 20170524
  Transmission Date: 20170830
  Serious: Yes (Hospitalization)
  Sender: FDA-Public Use
  Company Number: DE-AMGEN-DEUNI2017079209

PATIENT
  Age: 76 Year
  Sex: Female

DRUGS (2)
  1. ETANERCEPT [Suspect]
     Active Substance: ETANERCEPT
     Indication: PRODUCT USED FOR UNKNOWN INDICATION
     Dosage: 50 MG, EVERY 7 DAYS
     Route: 065
  2. LEFLUNOMID [Concomitant]
     Active Substance: LEFLUNOMIDE
     Dosage: 20 MG, DAILY

REACTIONS (2)
  - Normochromic normocytic anaemia [Recovered/Resolved]
  - Parvovirus B19 infection [Recovered/Resolved]

NARRATIVE: CASE EVENT DATE: 20170404
